FAERS Safety Report 4687394-7 (Version None)
Quarter: 2005Q2

REPORT INFORMATION
  Report Type: 
  Country: None (occurrence: None)
  Receive Date: 20050608
  Receipt Date: 20050527
  Transmission Date: 20051028
  Serious: Yes (Other)
  Sender: FDA-Public Use
  Company Number: 2005069198

PATIENT
  Age: 33 Year
  Sex: Female

DRUGS (1)
  1. NEURONTIN [Suspect]
     Indication: NECK INJURY
     Dates: start: 20000101

REACTIONS (4)
  - MEMORY IMPAIRMENT [None]
  - SPEECH DISORDER [None]
  - THINKING ABNORMAL [None]
  - VISION BLURRED [None]
